FAERS Safety Report 4660784-4 (Version None)
Quarter: 2005Q2

REPORT INFORMATION
  Report Type: 
  Country: None (occurrence: None)
  Receive Date: 20050427
  Receipt Date: 20040420
  Transmission Date: 20051028
  Serious: Yes (Hospitalization)
  Sender: FDA-Public Use
  Company Number: US-JNJFOC-20040305100

PATIENT
  Age: 48 Year
  Sex: Male

DRUGS (2)
  1. ULTRAM [Suspect]
     Indication: MONARTHRITIS
     Dosage: ORAL
     Route: 048
  2. BLOOD PRESSURE MEDICINE (ANTIHYPERTENSIVES) [Concomitant]

REACTIONS (1)
  - HYPERTENSION [None]
